FAERS Safety Report 23596105 (Version 1)
Quarter: 2024Q1

REPORT INFORMATION
  Report Type: Spontaneous
  Country: US (occurrence: US)
  Receive Date: 20240305
  Receipt Date: 20240305
  Transmission Date: 20240409
  Serious: Yes (Other)
  Sender: FDA-Public Use
  Company Number: US-BAYER-2024A029953

PATIENT
  Age: 78 Year
  Sex: Male

DRUGS (24)
  1. ADEMPAS [Suspect]
     Active Substance: RIOCIGUAT
     Indication: Pulmonary hypertension
     Dosage: UNK,
  2. ADEMPAS [Suspect]
     Active Substance: RIOCIGUAT
     Indication: Pulmonary hypertension
     Dosage: 2.5 MG, TID
     Route: 048
     Dates: start: 20190213
  3. PANTOPRAZOLE [Concomitant]
     Active Substance: PANTOPRAZOLE
  4. WARFARIN [Concomitant]
     Active Substance: WARFARIN
  5. GABAPENTIN [Concomitant]
     Active Substance: GABAPENTIN
  6. MONTELUKAST [Concomitant]
     Active Substance: MONTELUKAST SODIUM
  7. INSULIN NOS [Concomitant]
     Active Substance: INSULIN NOS
  8. INSULIN LISPRO [Concomitant]
     Active Substance: INSULIN LISPRO
  9. ESCITALOPRAM [Concomitant]
     Active Substance: ESCITALOPRAM OXALATE
  10. MEXILETINE [Concomitant]
     Active Substance: MEXILETINE
  11. WIXELA INHUB [Concomitant]
     Active Substance: FLUTICASONE PROPIONATE\SALMETEROL XINAFOATE
  12. BUMETANIDE [Concomitant]
     Active Substance: BUMETANIDE
  13. ATORVASTATIN [Concomitant]
     Active Substance: ATORVASTATIN
  14. FERROUS SULFATE [Concomitant]
     Active Substance: FERROUS SULFATE
  15. ALBUTEROL [Concomitant]
     Active Substance: ALBUTEROL
  16. IPRATROPIUM [Concomitant]
     Active Substance: IPRATROPIUM
  17. ALBUTEROL SULFATE [Concomitant]
     Active Substance: ALBUTEROL SULFATE
  18. BISOPROLOL [Concomitant]
     Active Substance: BISOPROLOL\BISOPROLOL FUMARATE
  19. MAGNESIUM OXIDE [Concomitant]
     Active Substance: MAGNESIUM OXIDE
  20. CORTICOSTEROID NOS [Concomitant]
     Active Substance: CORTICOSTEROID NOS
  21. VITAMINS [Concomitant]
     Active Substance: VITAMINS
  22. VITAMIN D3 [Concomitant]
     Active Substance: CHOLECALCIFEROL
  23. CALCIUM CITRATE [Concomitant]
     Active Substance: CALCIUM CITRATE
  24. KEFLEX [Concomitant]
     Active Substance: CEPHALEXIN

REACTIONS (1)
  - Cellulitis [None]
